FAERS Safety Report 8193117-X (Version None)
Quarter: 2012Q1

REPORT INFORMATION
  Report Type: 
  Country: None (occurrence: None)
  Receive Date: 20120308
  Receipt Date: 20120308
  Transmission Date: 20120608
  Serious: Yes (Death)
  Sender: FDA-Public Use
  Company Number: None

PATIENT
  Age: 58 Year
  Sex: Male
  Weight: 81.2 kg

DRUGS (1)
  1. EFFIENT [Suspect]
     Indication: PERCUTANEOUS CORONARY INTERVENTION
     Dosage: 60.0 MG
     Route: 048
     Dates: start: 20120111, end: 20120111

REACTIONS (8)
  - CHEST PAIN [None]
  - DRUG INEFFECTIVE [None]
  - ELECTROCARDIOGRAM ST SEGMENT ELEVATION [None]
  - CEREBROVASCULAR ACCIDENT [None]
  - CORONARY ARTERY REOCCLUSION [None]
  - METASTATIC NEOPLASM [None]
  - HEADACHE [None]
  - HAEMORRHAGE INTRACRANIAL [None]
